FAERS Safety Report 6515754-8 (Version None)
Quarter: 2009Q4

REPORT INFORMATION
  Report Type: 
  Country: None (occurrence: None)
  Receive Date: 20091223
  Receipt Date: 20091218
  Transmission Date: 20100525
  Serious: Yes (Other)
  Sender: FDA-Public Use
  Company Number: US-BAYER-200943255NA

PATIENT
  Sex: Female

DRUGS (1)
  1. YAZ [Suspect]
     Indication: ACNE
     Dates: start: 20080201, end: 20090201

REACTIONS (4)
  - CEREBROVASCULAR ACCIDENT [None]
  - DYSKINESIA [None]
  - HEMIPARESIS [None]
  - VISUAL ACUITY REDUCED [None]
